FAERS Safety Report 6421224-8 (Version None)
Quarter: 2009Q4

REPORT INFORMATION
  Report Type: 
  Country: None (occurrence: None)
  Receive Date: 20091029
  Receipt Date: 20091029
  Transmission Date: 20100525
  Serious: Yes (Death, Life-Threatening, Hospitalization, Disabling, Congenital Anomaly)
  Sender: FDA-Public Use
  Company Number: None

PATIENT

DRUGS (1)
  1. MYLANTA CLASSIC [Suspect]

REACTIONS (2)
  - INCORRECT DOSE ADMINISTERED [None]
  - PRODUCT LABEL ISSUE [None]
